FAERS Safety Report 19215821 (Version 1)
Quarter: 2021Q2

REPORT INFORMATION
  Report Type: Spontaneous
  Country: FR (occurrence: FR)
  Receive Date: 20210505
  Receipt Date: 20210505
  Transmission Date: 20210717
  Serious: Yes (Hospitalization, Other)
  Sender: FDA-Public Use
  Company Number: FR-SA-2021SA138397

PATIENT
  Age: 74 Year
  Sex: Male

DRUGS (10)
  1. GEMCITABINE HYDROCHLORIDE. [Suspect]
     Active Substance: GEMCITABINE HYDROCHLORIDE
     Indication: PANCREATIC CARCINOMA METASTATIC
     Dosage: 2ND COURSE 40 MG / ML, ON D1
     Route: 041
     Dates: start: 20210406
  2. OXALIPLATIN. [Suspect]
     Active Substance: OXALIPLATIN
     Indication: PANCREATIC CARCINOMA METASTATIC
     Dosage: 2ND COURSE, 5 MG / ML
     Route: 041
     Dates: start: 20210406
  3. VICTOZA [Concomitant]
     Active Substance: LIRAGLUTIDE
  4. INNOHEP [Concomitant]
     Active Substance: TINZAPARIN SODIUM
  5. LIPTRUZET [Concomitant]
     Active Substance: ATORVASTATIN CALCIUM\EZETIMIBE
  6. BISOPROLOL [Concomitant]
     Active Substance: BISOPROLOL
  7. KARDEGIC [Concomitant]
     Active Substance: ASPIRIN DL-LYSINE
  8. TELMISARTAN. [Concomitant]
     Active Substance: TELMISARTAN
  9. AMLOR [Concomitant]
     Active Substance: AMLODIPINE BESYLATE
  10. METFORMINE [METFORMIN] [Concomitant]
     Active Substance: METFORMIN HYDROCHLORIDE

REACTIONS (1)
  - Cardiac failure [Recovering/Resolving]

NARRATIVE: CASE EVENT DATE: 20210407
